FAERS Safety Report 12880932 (Version 1)
Quarter: 2016Q4

REPORT INFORMATION
  Report Type: Spontaneous
  Country: US (occurrence: US)
  Receive Date: 20161025
  Receipt Date: 20161025
  Transmission Date: 20170207
  Serious: Yes (Hospitalization)
  Sender: FDA-Public Use
  Company Number: None

PATIENT
  Age: 94 Year
  Sex: Female
  Weight: 75.8 kg

DRUGS (12)
  1. NORVASC [Concomitant]
     Active Substance: AMLODIPINE BESYLATE
  2. HUMULIN N [Suspect]
     Active Substance: INSULIN HUMAN
     Indication: DIABETES MELLITUS
     Dosage: 20UNITS Q NIGHT SQ   ?CHRONIC
     Route: 058
  3. APAP [Concomitant]
     Active Substance: ACETAMINOPHEN
  4. ALPHAGAN P [Concomitant]
     Active Substance: BRIMONIDINE TARTRATE
  5. ECOTRIN [Concomitant]
     Active Substance: ASPIRIN
  6. ARICEPT [Concomitant]
     Active Substance: DONEPEZIL HYDROCHLORIDE
  7. MUCINEX [Concomitant]
     Active Substance: GUAIFENESIN
  8. DELTASONE [Concomitant]
     Active Substance: PREDNISONE
  9. HUMULIN N [Suspect]
     Active Substance: INSULIN HUMAN
     Indication: DIABETES MELLITUS
     Dosage: 35UNITS Q MORNING SQ? ?CHRONIC
     Route: 058
  10. NEURONTIN [Concomitant]
     Active Substance: GABAPENTIN
  11. CA+D [Concomitant]
  12. FLONASE [Concomitant]
     Active Substance: FLUTICASONE PROPIONATE

REACTIONS (1)
  - Hypoglycaemia [None]

NARRATIVE: CASE EVENT DATE: 20150810
